FAERS Safety Report 6724775-1 (Version None)
Quarter: 2010Q2

REPORT INFORMATION
  Report Type: 
  Country: None (occurrence: None)
  Receive Date: 20100511
  Receipt Date: 20100430
  Transmission Date: 20101027
  Serious: Yes (Death)
  Sender: FDA-Public Use
  Company Number: 2010AL002554

PATIENT
  Age: 24 Year
  Sex: Male

DRUGS (2)
  1. OXAZEPAM [Suspect]
  2. ETHANOL [Concomitant]

REACTIONS (4)
  - ASPHYXIA [None]
  - DRUG TOXICITY [None]
  - PULMONARY CONGESTION [None]
  - PULMONARY OEDEMA [None]
